FAERS Safety Report 6192119-2 (Version None)
Quarter: 2009Q2

REPORT INFORMATION
  Report Type: 
  Country: None (occurrence: None)
  Receive Date: 20090515
  Receipt Date: 20090505
  Transmission Date: 20091009
  Serious: Yes (Other)
  Sender: FDA-Public Use
  Company Number: ES-ELI_LILLY_AND_COMPANY-ES200905000963

PATIENT
  Sex: Female

DRUGS (1)
  1. ATOMOXETINE HCL [Suspect]
     Dosage: UNK, UNKNOWN
     Route: 048

REACTIONS (1)
  - LUPUS-LIKE SYNDROME [None]
